FAERS Safety Report 9432528 (Version 1)
Quarter: 2013Q3

REPORT INFORMATION
  Report Type: Report from Study
  Country: VE (occurrence: VE)
  Receive Date: 20130731
  Receipt Date: 20130731
  Transmission Date: 20140515
  Serious: Yes (Other)
  Sender: FDA-Public Use
  Company Number: PHHY2013VE076404

PATIENT
  Age: 64 Year
  Sex: Female

DRUGS (7)
  1. ACLASTA [Suspect]
     Indication: OSTEOPOROSIS
     Dosage: 5 MG, ANNUAL
     Route: 042
     Dates: start: 20130525
  2. DIOVAN HCT [Suspect]
     Indication: HYPERTENSION
     Dosage: 1 DF, QD, DAILY
     Route: 048
  3. CALCIUM [Concomitant]
     Dosage: UNK
  4. MAXIMA [Concomitant]
     Dosage: UNK
  5. CORASPIRINA [Concomitant]
     Indication: PLATELET DISORDER
     Dosage: 100 MG, QD
     Route: 048
  6. IDEOS [Concomitant]
     Indication: OSTEOPOROSIS
     Dosage: 500 MG-400 IU
     Route: 048
     Dates: start: 201302
  7. OXINORM [Concomitant]
     Indication: NERVOUS SYSTEM DISORDER
     Dosage: UNK UKN, QD
     Route: 048

REACTIONS (4)
  - Pain [Recovered/Resolved]
  - Chills [Recovered/Resolved]
  - Pyrexia [Recovered/Resolved]
  - Headache [Recovered/Resolved]
